FAERS Safety Report 10259350 (Version 1)
Quarter: 2014Q2

REPORT INFORMATION
  Report Type: Spontaneous
  Country: US (occurrence: US)
  Receive Date: 20140625
  Receipt Date: 20140625
  Transmission Date: 20141212
  Serious: No
  Sender: FDA-Public Use
  Company Number: US-ASTELLAS-2014US001852

PATIENT
  Sex: Female

DRUGS (6)
  1. VESICARE [Suspect]
     Indication: URGE INCONTINENCE
     Route: 048
  2. SINEMET [Concomitant]
     Indication: RESTLESS LEGS SYNDROME
     Dosage: 25-100 MG ONCE DAILY
     Route: 048
  3. PRAVACHOL [Concomitant]
     Indication: BLOOD CHOLESTEROL ABNORMAL
     Route: 048
  4. PAXIL [Concomitant]
     Indication: DEPRESSION
     Route: 048
  5. ZYRTEC [Concomitant]
     Indication: HYPERSENSITIVITY
     Route: 048
  6. NEXIUM                             /01479302/ [Concomitant]
     Indication: GASTROOESOPHAGEAL REFLUX DISEASE
     Route: 048

REACTIONS (1)
  - Inappropriate schedule of drug administration [Unknown]
